FAERS Safety Report 25360481 (Version 1)
Quarter: 2025Q2

REPORT INFORMATION
  Report Type: Spontaneous
  Country: CN (occurrence: CN)
  Receive Date: 20250527
  Receipt Date: 20250527
  Transmission Date: 20250716
  Serious: Yes (Other)
  Sender: BEIGENE
  Company Number: CN-BEIGENE-BGN-2025-008123

PATIENT
  Age: 57 Year
  Weight: 55 kg

DRUGS (8)
  1. TISLELIZUMAB [Suspect]
     Active Substance: TISLELIZUMAB
     Indication: Oesophageal carcinoma
     Dosage: 20 MILLILITER, Q3WK
  2. TISLELIZUMAB [Suspect]
     Active Substance: TISLELIZUMAB
     Dosage: 20 MILLILITER, Q3WK
     Route: 041
  3. TISLELIZUMAB [Suspect]
     Active Substance: TISLELIZUMAB
     Dosage: 20 MILLILITER, Q3WK
     Route: 041
  4. TISLELIZUMAB [Suspect]
     Active Substance: TISLELIZUMAB
     Dosage: 20 MILLILITER, Q3WK
  5. CISPLATIN [Concomitant]
     Active Substance: CISPLATIN
     Indication: Oesophageal carcinoma
     Dosage: 110 MILLIGRAM, Q3WK
  6. CISPLATIN [Concomitant]
     Active Substance: CISPLATIN
     Dosage: 110 MILLIGRAM, Q3WK
     Route: 041
  7. CISPLATIN [Concomitant]
     Active Substance: CISPLATIN
     Dosage: 110 MILLIGRAM, Q3WK
     Route: 041
  8. CISPLATIN [Concomitant]
     Active Substance: CISPLATIN
     Dosage: 110 MILLIGRAM, Q3WK

REACTIONS (1)
  - Hypokalaemia [Recovering/Resolving]
